FAERS Safety Report 10492822 (Version 1)
Quarter: 2014Q4

REPORT INFORMATION
  Report Type: Spontaneous
  Country: US (occurrence: US)
  Receive Date: 20141002
  Receipt Date: 20141002
  Transmission Date: 20150528
  Serious: No
  Sender: FDA-Public Use
  Company Number: US-GLAXOSMITHKLINE-A1075892A

PATIENT
  Age: 57 Year
  Sex: Female

DRUGS (22)
  1. FENTANYL. [Concomitant]
     Active Substance: FENTANYL
  2. ENTOCORT [Concomitant]
     Active Substance: BUDESONIDE
  3. AMBIEN [Concomitant]
     Active Substance: ZOLPIDEM TARTRATE
  4. RESTASIS [Concomitant]
     Active Substance: CYCLOSPORINE
  5. OXYGEN. [Concomitant]
     Active Substance: OXYGEN
  6. ZANAFLEX [Concomitant]
     Active Substance: TIZANIDINE HYDROCHLORIDE
  7. DICYCLOMINE [Concomitant]
     Active Substance: DICYCLOMINE HYDROCHLORIDE
  8. LOMOTIL [Concomitant]
     Active Substance: ATROPINE SULFATE\DIPHENOXYLATE HYDROCHLORIDE
  9. OXYCONTIN [Concomitant]
     Active Substance: OXYCODONE HYDROCHLORIDE
  10. CYMBALTA [Concomitant]
     Active Substance: DULOXETINE HYDROCHLORIDE
  11. VITAMIN B12 [Concomitant]
     Active Substance: CYANOCOBALAMIN
  12. NYSTATIN. [Concomitant]
     Active Substance: NYSTATIN
  13. ADVAIR HFA [Suspect]
     Active Substance: FLUTICASONE PROPIONATE\SALMETEROL XINAFOATE
     Indication: CHRONIC OBSTRUCTIVE PULMONARY DISEASE
     Dosage: 2PUFF TWICE PER DAY
     Route: 065
  14. NYSTATIN. [Suspect]
     Active Substance: NYSTATIN
     Indication: CANDIDA INFECTION
     Route: 048
  15. PRENATAL VITAMINS [Concomitant]
     Active Substance: VITAMINS
  16. HUMIRA [Suspect]
     Active Substance: ADALIMUMAB
     Indication: CROHN^S DISEASE
     Dosage: 160MG UNKNOWN
     Route: 065
     Dates: start: 20140401, end: 20140415
  17. ALBUTEROL. [Concomitant]
     Active Substance: ALBUTEROL
  18. SPIRIVA [Concomitant]
     Active Substance: TIOTROPIUM BROMIDE MONOHYDRATE
  19. XANAX [Concomitant]
     Active Substance: ALPRAZOLAM
  20. NEURONTIN [Concomitant]
     Active Substance: GABAPENTIN
  21. PRILOSEC [Concomitant]
     Active Substance: OMEPRAZOLE MAGNESIUM
  22. FOLIC ACID. [Concomitant]
     Active Substance: FOLIC ACID

REACTIONS (14)
  - Burning sensation [Unknown]
  - Rash macular [Unknown]
  - Local swelling [Unknown]
  - Mouth haemorrhage [Unknown]
  - Scratch [Unknown]
  - Lip swelling [Unknown]
  - Pain [Unknown]
  - Throat irritation [Unknown]
  - Odynophagia [Unknown]
  - Oropharyngeal candidiasis [Unknown]
  - Oxygen saturation decreased [Unknown]
  - Candida infection [Unknown]
  - Erythema [Unknown]
  - Lip haemorrhage [Unknown]

NARRATIVE: CASE EVENT DATE: 20140423
